FAERS Safety Report 6451599-5 (Version None)
Quarter: 2009Q4

REPORT INFORMATION
  Report Type: 
  Country: None (occurrence: None)
  Receive Date: 20091123
  Receipt Date: 20091109
  Transmission Date: 20100525
  Serious: No
  Sender: FDA-Public Use
  Company Number: PHHY2009AU26250

PATIENT
  Sex: Female

DRUGS (5)
  1. CLOZARIL [Suspect]
     Dosage: 400 MG NOCTE
     Dates: start: 19980805
  2. LEVOTHYROXINE SODIUM [Concomitant]
     Dosage: 100MG MANE
  3. PANTOPRAZOLE [Concomitant]
     Dosage: 40 MG MANE
  4. BENZTROPEINE [Concomitant]
     Dosage: 1 MG NOCTE
  5. SERETIDE [Concomitant]
     Dosage: 250 MG MANE

REACTIONS (2)
  - ELECTROCARDIOGRAM QT PROLONGED [None]
  - VENTRICULAR EXTRASYSTOLES [None]
